FAERS Safety Report 6050400-1 (Version None)
Quarter: 2009Q1

REPORT INFORMATION
  Report Type: 
  Country: None (occurrence: None)
  Receive Date: 20090122
  Receipt Date: 20090122
  Transmission Date: 20090719
  Serious: Yes (Other)
  Sender: FDA-Public Use
  Company Number: None

PATIENT
  Age: 65 Year
  Sex: Female

DRUGS (8)
  1. CLOFARABINE, 1MG , GENZYME [Suspect]
     Indication: MYELODYSPLASTIC SYNDROME
     Dosage: 1MG, QD X10 DAYS, PO
     Route: 048
     Dates: start: 20090101, end: 20090110
  2. DESFERAL [Concomitant]
  3. LORTAB [Concomitant]
  4. CALCIUM WITH VITAMIN D [Concomitant]
  5. MULTI-VITAMIN [Concomitant]
  6. TYLENOL [Concomitant]
  7. SOLU-CORTEF [Concomitant]
  8. NEUPOGEN [Concomitant]

REACTIONS (2)
  - NEUTROPENIA [None]
  - THROMBOCYTOPENIA [None]
